FAERS Safety Report 22913884 (Version 3)
Quarter: 2024Q3

REPORT INFORMATION
  Report Type: Spontaneous
  Country: US (occurrence: US)
  Receive Date: 20230906
  Receipt Date: 20240930
  Transmission Date: 20241016
  Serious: Yes (Hospitalization)
  Sender: SANOFI AVENTIS
  Company Number: US-SA-SAC20230904001529

PATIENT
  Age: 70 Year
  Sex: Female

DRUGS (2)
  1. REZUROCK [Suspect]
     Active Substance: BELUMOSUDIL
     Indication: Graft versus host disease
     Dosage: 200 MG, QD
     Route: 048
     Dates: start: 20230808
  2. PREDNISONE [Concomitant]
     Active Substance: PREDNISONE
     Indication: Rash macular

REACTIONS (13)
  - COVID-19 [Unknown]
  - Depression [Unknown]
  - Pain in extremity [Unknown]
  - Rash macular [Unknown]
  - Pain [Unknown]
  - Emotional disorder [Unknown]
  - Joint injury [Unknown]
  - General physical health deterioration [Unknown]
  - Decreased activity [Unknown]
  - Depressed mood [Unknown]
  - Energy increased [Unknown]
  - Feeling abnormal [Unknown]
  - Urinary tract infection [Unknown]
